FAERS Safety Report 4785807-3 (Version None)
Quarter: 2005Q3

REPORT INFORMATION
  Report Type: 
  Country: None (occurrence: None)
  Receive Date: 20050929
  Receipt Date: 20050922
  Transmission Date: 20060218
  Serious: Yes (Other)
  Sender: FDA-Public Use
  Company Number: 8403

PATIENT
  Age: 28 Year
  Sex: Male
  Weight: 72.5755 kg

DRUGS (2)
  1. SEPTOCAINE [Suspect]
     Indication: LOCAL ANAESTHESIA
     Dosage: 2 CARPULES INJECTED
  2. PREMIER TOPICAL [Suspect]
     Indication: APPLICATION SITE ANAESTHESIA
     Dosage: TOPICAL
     Route: 061

REACTIONS (1)
  - HYPOAESTHESIA ORAL [None]
